FAERS Safety Report 6737604-7 (Version None)
Quarter: 2010Q2

REPORT INFORMATION
  Report Type: 
  Country: None (occurrence: None)
  Receive Date: 20100524
  Receipt Date: 20100421
  Transmission Date: 20101027
  Serious: No
  Sender: FDA-Public Use
  Company Number: US-BAYER-201014647BCC

PATIENT
  Age: 86 Year
  Sex: Female
  Weight: 53 kg

DRUGS (9)
  1. ALEVE [Suspect]
     Indication: FEELING OF RELAXATION
     Dosage: TOTAL DAILY DOSE: 220 MG  UNIT DOSE: 220 MG
     Route: 048
     Dates: start: 20100420
  2. DULCOLAX STOOL SOFTNER [Concomitant]
     Route: 065
  3. CRANBERRY PILL [Concomitant]
     Indication: RENAL DISORDER
     Route: 065
  4. CENTRUM SILVER [Concomitant]
     Route: 065
  5. ASPIRIN [Concomitant]
     Route: 065
  6. BENICAR [Concomitant]
     Route: 065
  7. SIMVASTATIN [Concomitant]
     Route: 065
  8. CALCIUM [Concomitant]
     Route: 065
  9. LORAZEPAM [Concomitant]
     Route: 065

REACTIONS (3)
  - ABDOMINAL DISCOMFORT [None]
  - PRURITUS [None]
  - RASH [None]
